FAERS Safety Report 16924646 (Version 1)
Quarter: 2019Q4

REPORT INFORMATION
  Report Type: Spontaneous
  Country: US (occurrence: US)
  Receive Date: 20191013
  Receipt Date: 20191013
  Transmission Date: 20200122
  Serious: Yes (Other)
  Sender: FDA-Public Use
  Company Number: None

PATIENT
  Age: 42 Year
  Sex: Female
  Weight: 65.25 kg

DRUGS (2)
  1. CETYLPYRIDINIUM CHLORIDE. [Suspect]
     Active Substance: CETYLPYRIDINIUM CHLORIDE
  2. CETYLPYRIDINIUM CHLORIDE. [Concomitant]
     Active Substance: CETYLPYRIDINIUM CHLORIDE

REACTIONS (1)
  - Tooth deposit [None]

NARRATIVE: CASE EVENT DATE: 20191002
